FAERS Safety Report 10555742 (Version 2)
Quarter: 2014Q4

REPORT INFORMATION
  Report Type: Report from Study
  Country: US (occurrence: US)
  Receive Date: 20141030
  Receipt Date: 20141112
  Transmission Date: 20150529
  Serious: Yes (Hospitalization, Other)
  Sender: FDA-Public Use
  Company Number: PHEH2014US021651

PATIENT
  Age: 70 Year
  Sex: Female

DRUGS (3)
  1. ZORTRESS [Suspect]
     Active Substance: EVEROLIMUS
     Indication: HEART TRANSPLANT
     Dosage: 1 MG, BID
     Route: 048
  2. ZORTRESS [Suspect]
     Active Substance: EVEROLIMUS
     Dosage: 4 MG, BID
     Route: 048
     Dates: start: 20140922
  3. LISINOPRIL. [Concomitant]
     Active Substance: LISINOPRIL
     Indication: PRODUCT USED FOR UNKNOWN INDICATION
     Route: 065

REACTIONS (6)
  - Hyponatraemia [Unknown]
  - Immunosuppressant drug level decreased [Unknown]
  - Blood pressure increased [Unknown]
  - Hypersensitivity [Unknown]
  - Seizure [Unknown]
  - Fluid retention [Unknown]

NARRATIVE: CASE EVENT DATE: 20140922
